FAERS Safety Report 11272472 (Version 2)
Quarter: 2015Q3

REPORT INFORMATION
  Report Type: Report from Study
  Country: VE (occurrence: VE)
  Receive Date: 20150715
  Receipt Date: 20150821
  Transmission Date: 20151125
  Serious: Yes (Death, Hospitalization)
  Sender: FDA-Public Use
  Company Number: VE-ABBVIE-15K-178-1426940-00

PATIENT
  Sex: Female

DRUGS (1)
  1. HUMIRA [Suspect]
     Active Substance: ADALIMUMAB
     Indication: PRODUCT USED FOR UNKNOWN INDICATION
     Route: 058
     Dates: start: 20141215, end: 20150420

REACTIONS (3)
  - Respiratory arrest [Fatal]
  - Crohn^s disease [Unknown]
  - Coma [Unknown]

NARRATIVE: CASE EVENT DATE: 20150621
